FAERS Safety Report 15255554 (Version 1)
Quarter: 2018Q3

REPORT INFORMATION
  Report Type: Spontaneous
  Country: US (occurrence: US)
  Receive Date: 20180717
  Receipt Date: 20180717
  Transmission Date: 20181010
  Serious: Yes (Life-Threatening)
  Sender: FDA-Public Use
  Company Number: None

PATIENT
  Age: 36 Year
  Sex: Female
  Weight: 110.25 kg

DRUGS (12)
  1. DILANTIN [Concomitant]
     Active Substance: PHENYTOIN
  2. CABERGOLINE. [Concomitant]
     Active Substance: CABERGOLINE
  3. LAMOTRIGINE. [Concomitant]
     Active Substance: LAMOTRIGINE
  4. HYDROCODONE [Concomitant]
     Active Substance: HYDROCODONE
  5. TRAVATAN Z [Concomitant]
     Active Substance: TRAVOPROST
  6. IBRUPROGEN [Concomitant]
  7. DESMOPRESSIN [Concomitant]
     Active Substance: DESMOPRESSIN
  8. CARISOPRODOL. [Concomitant]
     Active Substance: CARISOPRODOL
  9. FYCOMPA [Suspect]
     Active Substance: PERAMPANEL
     Indication: EPILEPSY
     Dosage: ?          QUANTITY:30 TABLET(S);?
     Route: 048
     Dates: start: 20180714, end: 20180716
  10. AMLODIPINE [Concomitant]
     Active Substance: AMLODIPINE BESYLATE
  11. ALPRAZOLAM. [Concomitant]
     Active Substance: ALPRAZOLAM
  12. LEVOTHYROXINE. [Concomitant]
     Active Substance: LEVOTHYROXINE

REACTIONS (8)
  - Photopsia [None]
  - Paraesthesia [None]
  - Homicidal ideation [None]
  - Skin burning sensation [None]
  - Suicidal ideation [None]
  - Fear [None]
  - Paranoia [None]
  - Thinking abnormal [None]

NARRATIVE: CASE EVENT DATE: 20180716
